FAERS Safety Report 5801089-5 (Version None)
Quarter: 2008Q3

REPORT INFORMATION
  Report Type: 
  Country: None (occurrence: None)
  Receive Date: 20080707
  Receipt Date: 20080703
  Transmission Date: 20090109
  Serious: Yes (Death, Hospitalization, Congenital Anomaly, Other)
  Sender: FDA-Public Use
  Company Number: GB-RANBAXY-2007RR-05040

PATIENT

DRUGS (3)
  1. FLUOXETINE [Suspect]
     Route: 064
     Dates: start: 20060914
  2. LUSTRAL [Suspect]
     Dosage: 50 MG, QD
     Route: 064
     Dates: end: 20060914
  3. LUSTRAL [Suspect]
     Dosage: 100 MG, QD
     Dates: start: 20060323

REACTIONS (3)
  - CONGENITAL BRAIN DAMAGE [None]
  - ENCEPHALITIS [None]
  - NEONATAL ASPHYXIA [None]
